FAERS Safety Report 20734779 (Version 2)
Quarter: 2022Q4

REPORT INFORMATION
  Report Type: Spontaneous
  Country: NL (occurrence: NL)
  Receive Date: 20220421
  Receipt Date: 20221128
  Transmission Date: 20230113
  Serious: Yes (Life-Threatening, Hospitalization, Other)
  Sender: FDA-Public Use
  Company Number: NL-NOVARTISPH-NVSC2022NL089980

PATIENT
  Age: 71 Year
  Sex: Male

DRUGS (11)
  1. TACROLIMUS [Suspect]
     Active Substance: TACROLIMUS
     Indication: Prophylaxis against graft versus host disease
     Dosage: 1 MG, BID
     Route: 065
  2. TACROLIMUS [Suspect]
     Active Substance: TACROLIMUS
     Indication: Immunosuppressant drug therapy
  3. AZITHROMYCIN [Interacting]
     Active Substance: AZITHROMYCIN
     Indication: Mycobacterial infection
     Dosage: 6.25 MG/KG, QD
     Route: 048
  4. AZITHROMYCIN [Interacting]
     Active Substance: AZITHROMYCIN
     Indication: Atypical mycobacterial infection
  5. PREDNISOLONE [Interacting]
     Active Substance: PREDNISOLONE
     Indication: Prophylaxis against graft versus host disease
     Dosage: 5 MG, QD
     Route: 065
  6. PREDNISOLONE [Interacting]
     Active Substance: PREDNISOLONE
     Indication: Immunosuppressant drug therapy
  7. RIFAMPIN [Interacting]
     Active Substance: RIFAMPIN
     Indication: Mycobacterial infection
     Dosage: 7.5 MG/KG, QD
     Route: 065
  8. RIFAMPIN [Interacting]
     Active Substance: RIFAMPIN
     Indication: Atypical mycobacterial infection
  9. MYCOPHENOLATE MOFETIL [Interacting]
     Active Substance: MYCOPHENOLATE MOFETIL
     Indication: Prophylaxis against graft versus host disease
     Dosage: 500 MG, BID
     Route: 065
  10. ETHAMBUTOL [Interacting]
     Active Substance: ETHAMBUTOL HYDROCHLORIDE
     Indication: Mycobacterial infection
     Dosage: 15 MG/KG, QD
     Route: 065
  11. ETHAMBUTOL [Interacting]
     Active Substance: ETHAMBUTOL HYDROCHLORIDE
     Indication: Atypical mycobacterial infection

REACTIONS (7)
  - Hepatic function abnormal [Unknown]
  - Renal failure [Unknown]
  - Hepatic failure [Unknown]
  - Toxicity to various agents [Unknown]
  - Drug ineffective [Not Recovered/Not Resolved]
  - Drug interaction [Unknown]
  - Mycobacterial infection [Not Recovered/Not Resolved]

NARRATIVE: CASE EVENT DATE: 20200101
